FAERS Safety Report 5855758-1 (Version None)
Quarter: 2008Q3

REPORT INFORMATION
  Report Type: 
  Country: None (occurrence: None)
  Receive Date: 20080821
  Receipt Date: 20080821
  Transmission Date: 20090109
  Serious: Yes (Hospitalization, Disabling)
  Sender: FDA-Public Use
  Company Number: None

PATIENT
  Sex: Female
  Weight: 86.1834 kg

DRUGS (2)
  1. PROVIGIL [Suspect]
     Indication: FATIGUE
     Dosage: 200 MG 1 OR 2 DAILY
     Dates: start: 20050101, end: 20080501
  2. PROVIGIL [Suspect]
     Indication: SLEEP DISORDER
     Dosage: 200 MG 1 OR 2 DAILY
     Dates: start: 20050101, end: 20080501

REACTIONS (6)
  - ANGINA PECTORIS [None]
  - CARDIOVASCULAR DISORDER [None]
  - DYSPHONIA [None]
  - HALO VISION [None]
  - HYPERTENSION [None]
  - RASH [None]
